FAERS Safety Report 23859153 (Version 1)
Quarter: 2024Q2

REPORT INFORMATION
  Report Type: Spontaneous
  Country: US (occurrence: None)
  Receive Date: 20240515
  Receipt Date: 20240515
  Transmission Date: 20240715
  Serious: Yes (Hospitalization)
  Sender: FDA-Public Use
  Company Number: None

PATIENT
  Sex: Female
  Weight: 61.1 kg

DRUGS (4)
  1. CYTARABINE [Suspect]
     Active Substance: CYTARABINE
     Dates: end: 20240222
  2. CYTARABINE [Suspect]
     Active Substance: CYTARABINE
  3. METHOTREXATE [Suspect]
     Active Substance: METHOTREXATE
     Dates: end: 20240221
  4. PONATINIB [Suspect]
     Active Substance: PONATINIB
     Dates: end: 20240227

REACTIONS (5)
  - Syncope [None]
  - Constipation [None]
  - Pyrexia [None]
  - Colitis [None]
  - Clostridium difficile infection [None]

NARRATIVE: CASE EVENT DATE: 20240309
